FAERS Safety Report 7078166-7 (Version None)
Quarter: 2010Q4

REPORT INFORMATION
  Report Type: 
  Country: None (occurrence: None)
  Receive Date: 20101101
  Receipt Date: 20101101
  Transmission Date: 20110411
  Serious: No
  Sender: FDA-Public Use
  Company Number: None

PATIENT
  Age: 44 Year
  Sex: Male

DRUGS (3)
  1. GOODY'S HEADACHE POWDER [Suspect]
     Dates: start: 20040101, end: 20090309
  2. GOODY'S HEADACHE POWDER [Suspect]
     Dates: end: 20090401
  3. SUNFLOWER SUPREME [Suspect]
     Dates: start: 20030101, end: 20090309

REACTIONS (3)
  - HEPATIC NECROSIS [None]
  - HEPATOTOXICITY [None]
  - JAUNDICE [None]
